FAERS Safety Report 25314306 (Version 1)
Quarter: 2025Q2

REPORT INFORMATION
  Report Type: Spontaneous
  Country: US (occurrence: US)
  Receive Date: 20250514
  Receipt Date: 20250514
  Transmission Date: 20250717
  Serious: No
  Sender: TAIHO ONCOLOGY INC
  Company Number: US-TAIHOP-2025-005067

PATIENT
  Sex: Male

DRUGS (1)
  1. LONSURF [Suspect]
     Active Substance: TIPIRACIL HYDROCHLORIDE\TRIFLURIDINE
     Indication: Rectal cancer
     Dosage: FORM STRENGTH: 15MG AND 20MG?CYCLE UNKNOWN?FIRST SHIPPED ON 05-MAR-2025
     Route: 048

REACTIONS (2)
  - Toxicity to various agents [Unknown]
  - Inappropriate schedule of product administration [Unknown]
